FAERS Safety Report 14831570 (Version 3)
Quarter: 2018Q2

REPORT INFORMATION
  Report Type: Spontaneous
  Country: US (occurrence: US)
  Receive Date: 20180501
  Receipt Date: 20180629
  Transmission Date: 20180711
  Serious: No
  Sender: FDA-Public Use
  Company Number: US-ASTRAZENECA-2018SE55907

PATIENT
  Sex: Female

DRUGS (2)
  1. SYMBICORT [Suspect]
     Active Substance: BUDESONIDE\FORMOTEROL FUMARATE DIHYDRATE
     Indication: CHRONIC OBSTRUCTIVE PULMONARY DISEASE
     Dosage: 160/4.5 MCG, 1 OR 2 PUFFS AS NEEDED AS REQUIRED
     Route: 055
  2. SYMBICORT [Suspect]
     Active Substance: BUDESONIDE\FORMOTEROL FUMARATE DIHYDRATE
     Indication: BRONCHITIS CHRONIC
     Dosage: 160/4.5 MCG, 1 OR 2 PUFFS AS NEEDED AS REQUIRED
     Route: 055

REACTIONS (13)
  - Weight decreased [Unknown]
  - Hypertension [Unknown]
  - Productive cough [Unknown]
  - Alopecia [Unknown]
  - Feeling abnormal [Unknown]
  - Tongue discomfort [Unknown]
  - Cataract [Unknown]
  - Herpes zoster [Unknown]
  - Device malfunction [Unknown]
  - Intentional product misuse [Unknown]
  - Limb discomfort [Unknown]
  - Decreased appetite [Unknown]
  - Ear discomfort [Unknown]
